FAERS Safety Report 5530857-2 (Version None)
Quarter: 2007Q4

REPORT INFORMATION
  Report Type: 
  Country: None (occurrence: None)
  Receive Date: 20071130
  Receipt Date: 20071120
  Transmission Date: 20080405
  Serious: Yes (Death)
  Sender: FDA-Public Use
  Company Number: US-SANOFI-SYNTHELABO-A03200706166

PATIENT
  Sex: Female

DRUGS (10)
  1. AMBIEN [Suspect]
     Indication: DRUG USE FOR UNKNOWN INDICATION
     Route: 048
     Dates: start: 20051001
  2. CEPHALEXIN [Concomitant]
     Route: 048
     Dates: start: 20060101
  3. PROMETHAZINE VC WITH CODEINE [Concomitant]
     Route: 048
     Dates: start: 20060101
  4. ERY-TAB [Concomitant]
     Route: 048
     Dates: start: 20060101
  5. SULFAMETHOXAZOLE + TRIMETHOPRIM [Concomitant]
     Route: 048
     Dates: start: 20060101
  6. CLINDAMYCIN HCL [Concomitant]
     Route: 048
     Dates: start: 20060101
  7. CEFZIL [Concomitant]
     Route: 048
     Dates: start: 20060101
  8. PROPOXYPHENE NAPSYLATE AND ACETAMINOPHEN [Concomitant]
     Dosage: 100-650
     Route: 048
     Dates: start: 20050101
  9. CIPROFLOXACIN [Concomitant]
     Route: 048
     Dates: start: 20050101
  10. HYDROCODONE + GUAIFENESIN [Concomitant]
     Dosage: 1 TO 1.5 TEASPOONS EVERY FOUR HOURS AS NEEDED
     Route: 048
     Dates: start: 20050101

REACTIONS (1)
  - ROAD TRAFFIC ACCIDENT [None]
